FAERS Safety Report 19906610 (Version 1)
Quarter: 2021Q3

REPORT INFORMATION
  Report Type: Report from Study
  Country: CN (occurrence: CN)
  Receive Date: 20210930
  Receipt Date: 20210930
  Transmission Date: 20211014
  Serious: Yes (Hospitalization)
  Sender: FDA-Public Use
  Company Number: CN-BRACCO-2020CN05500

PATIENT
  Age: 80 Year
  Sex: Male

DRUGS (4)
  1. SONOVUE [Suspect]
     Active Substance: SULFUR HEXAFLUORIDE
     Indication: ULTRASOUND DOPPLER
     Dosage: UNK
     Route: 042
     Dates: start: 20180420, end: 20180420
  2. SONOVUE [Suspect]
     Active Substance: SULFUR HEXAFLUORIDE
     Indication: ULTRASOUND DOPPLER
     Dosage: UNK
     Route: 042
     Dates: start: 20180420, end: 20180420
  3. SONOVUE [Suspect]
     Active Substance: SULFUR HEXAFLUORIDE
     Indication: ULTRASOUND DOPPLER
     Dosage: UNK
     Route: 042
     Dates: start: 20180420, end: 20180420
  4. NORMAL SALINE [Concomitant]
     Active Substance: SODIUM CHLORIDE
     Indication: ARTERIOGRAM CAROTID
     Dosage: 5 ML
     Dates: start: 20180319, end: 20180319

REACTIONS (2)
  - Abnormal faeces [Recovered/Resolved]
  - Abdominal pain [Recovered/Resolved]

NARRATIVE: CASE EVENT DATE: 20180420
